FAERS Safety Report 9329962 (Version 1)
Quarter: 2013Q2

REPORT INFORMATION
  Report Type: Spontaneous
  Country: US (occurrence: US)
  Receive Date: 20130604
  Receipt Date: 20130604
  Transmission Date: 20140414
  Serious: No
  Sender: FDA-Public Use
  Company Number: US-SANOFI-AVENTIS-2012SA053883

PATIENT
  Age: 58 Year
  Sex: Male
  Weight: 95 kg

DRUGS (9)
  1. LANTUS SOLOSTAR [Suspect]
     Indication: TYPE 2 DIABETES MELLITUS
     Dosage: DOSE:30 UNIT(S)
     Route: 058
     Dates: start: 20080310, end: 2012
  2. LANTUS SOLOSTAR [Suspect]
     Indication: TYPE 2 DIABETES MELLITUS
     Dosage: DOSE:34 UNIT(S)
     Route: 058
  3. LANTUS SOLOSTAR [Suspect]
     Indication: TYPE 2 DIABETES MELLITUS
     Dosage: DOSE:35 UNIT(S)
     Route: 058
  4. SOLOSTAR [Suspect]
     Indication: TYPE 2 DIABETES MELLITUS
     Dates: start: 20080310
  5. SOLOSTAR [Suspect]
     Indication: TYPE 2 DIABETES MELLITUS
     Dates: start: 20080310
  6. NOVOLOG [Concomitant]
     Indication: DIABETES MELLITUS
     Dosage: DOSE:30 UNIT(S)
     Dates: start: 20060110
  7. PLAVIX [Concomitant]
     Indication: COAGULOPATHY
     Dates: start: 20071005
  8. ASPIRIN [Concomitant]
  9. GLYBURIDE [Concomitant]
     Indication: DIABETES MELLITUS

REACTIONS (5)
  - Muscle injury [Unknown]
  - Nerve injury [Unknown]
  - Blood glucose increased [Not Recovered/Not Resolved]
  - Drug ineffective [Unknown]
  - Blood glucose decreased [Unknown]
